FAERS Safety Report 5281720-6 (Version None)
Quarter: 2007Q1

REPORT INFORMATION
  Report Type: 
  Country: None (occurrence: None)
  Receive Date: 20070330
  Receipt Date: 20070326
  Transmission Date: 20070707
  Serious: Yes (Hospitalization)
  Sender: FDA-Public Use
  Company Number: US-GLAXOSMITHKLINE-A0644647A

PATIENT
  Age: 62 Year
  Sex: Female

DRUGS (2)
  1. ADVAIR DISKUS 100/50 [Suspect]
     Route: 055
     Dates: start: 20061001
  2. UNSPECIFIED MEDICATION [Concomitant]

REACTIONS (5)
  - CIRCULATORY COLLAPSE [None]
  - DIZZINESS [None]
  - FATIGUE [None]
  - MUSCULAR WEAKNESS [None]
  - ORTHOSTATIC HYPOTENSION [None]
